FAERS Safety Report 25002787 (Version 1)
Quarter: 2025Q1

REPORT INFORMATION
  Report Type: Spontaneous
  Country: US (occurrence: US)
  Receive Date: 20250224
  Receipt Date: 20250224
  Transmission Date: 20250409
  Serious: Yes (Death, Other)
  Sender: Unknown Manufacturer
  Company Number: US-KOANAAP-SML-US-2025-00119

PATIENT
  Age: 78 Year
  Sex: Male

DRUGS (5)
  1. AZACITIDINE [Suspect]
     Active Substance: AZACITIDINE
     Indication: Chronic myeloid leukaemia
  2. AZACITIDINE [Suspect]
     Active Substance: AZACITIDINE
     Indication: Myelodysplastic syndrome/myeloproliferative neoplasm overlap syndrome
  3. VENETOCLAX [Suspect]
     Active Substance: VENETOCLAX
     Indication: Chronic myeloid leukaemia
  4. VENETOCLAX [Suspect]
     Active Substance: VENETOCLAX
     Indication: Myelodysplastic syndrome/myeloproliferative neoplasm overlap syndrome
  5. METFORMIN [Concomitant]
     Active Substance: METFORMIN HYDROCHLORIDE
     Indication: Type 2 diabetes mellitus

REACTIONS (1)
  - Fungal infection [Fatal]
